FAERS Safety Report 25031188 (Version 1)
Quarter: 2025Q1

REPORT INFORMATION
  Report Type: Spontaneous
  Country: US (occurrence: None)
  Receive Date: 20250228
  Receipt Date: 20250228
  Transmission Date: 20250409
  Serious: Yes (Death)
  Sender: FDA-CTU
  Company Number: None

PATIENT
  Age: 68 Year
  Sex: Female
  Weight: 53 kg

DRUGS (11)
  1. COLLAGENASE SANTYL [Suspect]
     Active Substance: COLLAGENASE CLOSTRIDIUM HISTOLYTICUM
     Indication: Decubitus ulcer
     Dosage: APPLY TO THE AFFECTED AREA DAILY TOPICAL ? ?
     Route: 061
     Dates: start: 20241217, end: 20250212
  2. DEXAMETHASONE [Concomitant]
     Active Substance: DEXAMETHASONE
  3. diazePAM , LORazepam [Concomitant]
  4. DOCUSATE SODIUM [Concomitant]
     Active Substance: DOCUSATE SODIUM
  5. ferrous sulfate 325 [Concomitant]
  6. ACETAMINOPHEN\HYDROCODONE [Concomitant]
     Active Substance: ACETAMINOPHEN\HYDROCODONE
  7. LEVOTHYROXINE [Concomitant]
     Active Substance: LEVOTHYROXINE
  8. lidocaine, polyethylene glycol, senna [Concomitant]
  9. methadone, naloxone [Concomitant]
  10. METHOCARBAMOL [Concomitant]
     Active Substance: METHOCARBAMOL
  11. PANTOPRAZOLE [Concomitant]
     Active Substance: PANTOPRAZOLE

REACTIONS (1)
  - Malignant neoplasm progression [None]

NARRATIVE: CASE EVENT DATE: 20250212
